FAERS Safety Report 8283132-X (Version None)
Quarter: 2012Q2

REPORT INFORMATION
  Report Type: 
  Country: None (occurrence: None)
  Receive Date: 20120413
  Receipt Date: 20120404
  Transmission Date: 20120825
  Serious: Yes (Other)
  Sender: FDA-Public Use
  Company Number: US-GLAXOSMITHKLINE-A0972367A

PATIENT
  Age: 54 Year
  Sex: Female

DRUGS (4)
  1. CELEXA [Concomitant]
  2. FLUTICASONE PROPIONATE [Suspect]
     Indication: RHINITIS ALLERGIC
     Dosage: 2SPR PER DAY
     Route: 045
     Dates: start: 20120309
  3. ANTABUSE [Concomitant]
  4. LISINOPRIL AND HYDROCHLOROTHIAZIDE [Concomitant]

REACTIONS (5)
  - BLOOD LACTIC ACID DECREASED [None]
  - DEHYDRATION [None]
  - HYPOTENSION [None]
  - SYNCOPE [None]
  - SENSORY LOSS [None]
